FAERS Safety Report 5414800-2 (Version None)
Quarter: 2007Q3

REPORT INFORMATION
  Report Type: 
  Country: None (occurrence: None)
  Receive Date: 20070813
  Receipt Date: 20070806
  Transmission Date: 20080115
  Serious: Yes (Hospitalization)
  Sender: FDA-Public Use
  Company Number: 2007SP015934

PATIENT
  Age: 56 Year
  Sex: Male
  Weight: 69.6 kg

DRUGS (7)
  1. TEMODAR [Suspect]
     Indication: GLIOBLASTOMA MULTIFORME
     Dosage: 200 MG/M2; PO
     Route: 048
     Dates: start: 20070628, end: 20070702
  2. IRINOTECAN HCL [Suspect]
     Indication: GLIOBLASTOMA MULTIFORME
     Dosage: 125 MG/M2; IV
     Route: 042
     Dates: start: 20070628, end: 20070705
  3. VERAPAMIL [Concomitant]
  4. ASPIRIN [Concomitant]
  5. DEXAMETHASONE 0.5MG TAB [Concomitant]
  6. DEPAKOTE [Concomitant]
  7. KLONOPIN [Concomitant]

REACTIONS (3)
  - DEEP VEIN THROMBOSIS [None]
  - NEUTROPENIC SEPSIS [None]
  - PULMONARY EMBOLISM [None]
